FAERS Safety Report 7465631-3 (Version None)
Quarter: 2011Q2

REPORT INFORMATION
  Report Type: 
  Country: None (occurrence: None)
  Receive Date: 20110509
  Receipt Date: 20110430
  Transmission Date: 20111010
  Serious: Yes (Other)
  Sender: FDA-Public Use
  Company Number: A0790252C

PATIENT
  Sex: Male
  Weight: 50 kg

DRUGS (3)
  1. LAPATINIB [Suspect]
     Route: 048
  2. CISPLATIN [Suspect]
     Route: 042
     Dates: start: 20070924
  3. RADIOTHERAPY [Concomitant]
     Route: 061
     Dates: start: 20070924

REACTIONS (1)
  - LYMPHOPENIA [None]
